FAERS Safety Report 6247727-7 (Version None)
Quarter: 2009Q2

REPORT INFORMATION
  Report Type: 
  Country: None (occurrence: None)
  Receive Date: 20090626
  Receipt Date: 20090617
  Transmission Date: 20091009
  Serious: Yes (Hospitalization, Other)
  Sender: FDA-Public Use
  Company Number: PHHY2009CH23942

PATIENT
  Age: 63 Year
  Sex: Male

DRUGS (9)
  1. SANDIMMUNE [Suspect]
     Indication: RENAL TRANSPLANT
     Dosage: 150 MG/DAY
  2. IMUREK [Suspect]
     Indication: RENAL TRANSPLANT
     Dosage: 1 DF
     Dates: start: 20081001, end: 20081001
  3. PREDNISONE TAB [Suspect]
     Indication: GOUT
     Dosage: 50 MG/DAY
     Dates: start: 20081001
  4. COSAAR PLUS [Concomitant]
     Indication: HYPERTENSION
     Dosage: UNK
  5. ASPIRIN [Concomitant]
     Dosage: UNK
  6. SORTIS [Concomitant]
     Dosage: UNK
  7. ROCALTROL [Concomitant]
     Dosage: UNK
  8. METOPROLOL TARTRATE [Concomitant]
     Dosage: UNK
  9. TORSEMIDE [Concomitant]
     Dosage: UNK

REACTIONS (8)
  - ARTHRALGIA [None]
  - CAMPYLOBACTER GASTROENTERITIS [None]
  - COLON POLYPECTOMY [None]
  - DIARRHOEA [None]
  - EROSIVE DUODENITIS [None]
  - GOUT [None]
  - INFLAMMATION [None]
  - NAUSEA [None]
